FAERS Safety Report 9399720 (Version 1)
Quarter: 2013Q3

REPORT INFORMATION
  Report Type: Spontaneous
  Country: US (occurrence: US)
  Receive Date: 20130715
  Receipt Date: 20130715
  Transmission Date: 20140515
  Serious: No
  Sender: FDA-Public Use
  Company Number: US-TEVA-416995USA

PATIENT
  Age: 30 Year
  Sex: Female
  Weight: 56.75 kg

DRUGS (1)
  1. PARAGARD 380A [Suspect]
     Indication: CONTRACEPTION
     Route: 015
     Dates: start: 201205, end: 20130628

REACTIONS (7)
  - Abdominal pain lower [Recovered/Resolved]
  - Vaginal infection [Not Recovered/Not Resolved]
  - Headache [Recovered/Resolved]
  - Dizziness [Recovered/Resolved]
  - Genital swelling [Recovered/Resolved]
  - Feeling abnormal [Recovered/Resolved]
  - Device expulsion [Recovered/Resolved]
